FAERS Safety Report 15708756 (Version 1)
Quarter: 2018Q4

REPORT INFORMATION
  Report Type: Spontaneous
  Country: US (occurrence: US)
  Receive Date: 20181211
  Receipt Date: 20181211
  Transmission Date: 20190205
  Serious: Yes (Other)
  Sender: FDA-Public Use
  Company Number: None

PATIENT
  Age: 36 Year
  Sex: Male
  Weight: 73.35 kg

DRUGS (1)
  1. BUPRENORPHINE-NALOXONE FILMS [Suspect]
     Active Substance: BUPRENORPHINE HYDROCHLORIDE\NALOXONE HYDROCHLORIDE
     Indication: DRUG DEPENDENCE
     Route: 048
     Dates: start: 20181015, end: 20181211

REACTIONS (5)
  - Drug ineffective [None]
  - Withdrawal syndrome [None]
  - Anxiety [None]
  - Drug dependence [None]
  - Dysphoria [None]

NARRATIVE: CASE EVENT DATE: 20181210
